FAERS Safety Report 8812687 (Version 1)
Quarter: 2012Q4

REPORT INFORMATION
  Report Type: 
  Country: GB (occurrence: GB)
  Receive Date: 20120927
  Receipt Date: 20120927
  Transmission Date: 20130627
  Serious: Yes (Hospitalization, Other)
  Sender: FDA-Public Use
  Company Number: GB-ABBOTT-12P-167-0986117-00

PATIENT
  Age: 55 Year
  Sex: Male

DRUGS (4)
  1. LOPINAVIR/RITONAVIR [Suspect]
  2. FLUTICASONE [Interacting]
     Indication: PRODUCT USED FOR UNKNOWN INDICATION
     Route: 055
  3. TENOFOVIR DISOPROXIL FUMARATE [Concomitant]
     Indication: HIV INFECTION
  4. EMTRICITABINE [Concomitant]
     Indication: HIV INFECTION

REACTIONS (4)
  - Cushing^s syndrome [Unknown]
  - Drug interaction [Unknown]
  - Adrenal suppression [Unknown]
  - Osteoporotic fracture [Unknown]
